FAERS Safety Report 8965055 (Version 1)
Quarter: 2012Q4

REPORT INFORMATION
  Report Type: 
  Country: US (occurrence: US)
  Receive Date: 20121213
  Receipt Date: 20121213
  Transmission Date: 20130627
  Serious: No
  Sender: FDA-Public Use
  Company Number: US-BRISTOL-MYERS SQUIBB COMPANY-16380545

PATIENT
  Age: 6 None
  Sex: Female

DRUGS (10)
  1. ORENCIA [Suspect]
     Dosage: last infusion in Jan2012
     Route: 042
     Dates: start: 20080721
  2. PRAVASTATIN SODIUM [Suspect]
  3. MOTRIN [Suspect]
  4. LASIX [Suspect]
  5. PREDNISONE [Concomitant]
     Route: 048
  6. TRAMADOL [Concomitant]
  7. VICODIN [Concomitant]
  8. AMBIEN [Concomitant]
     Indication: SLEEP DISORDER
  9. CALCIUM + VITAMIN D [Concomitant]
  10. NEXIUM [Concomitant]
     Indication: GASTROOESOPHAGEAL REFLUX DISEASE

REACTIONS (3)
  - Back pain [Unknown]
  - Gastroenteritis viral [Unknown]
  - Liver function test abnormal [Unknown]
